FAERS Safety Report 9004637 (Version 1)
Quarter: 2013Q1

REPORT INFORMATION
  Report Type: Spontaneous
  Country: US (occurrence: US)
  Receive Date: 20130109
  Receipt Date: 20130109
  Transmission Date: 20140127
  Serious: No
  Sender: FDA-Public Use
  Company Number: US-PFIZER INC-2013009388

PATIENT
  Age: 64 Year
  Sex: Female
  Weight: 55.78 kg

DRUGS (4)
  1. GEODON [Suspect]
     Indication: SCHIZOAFFECTIVE DISORDER
     Dosage: 120 MG, DAILY
     Dates: start: 201208
  2. GEODON [Suspect]
     Dosage: 60 MG, 2X/DAY
  3. CLONAZEPAM [Concomitant]
     Indication: ANXIETY
     Dosage: 0.5MG IN THE MORNING AND 1MG AT NIGHT
  4. LEVOTHYROXINE SODIUM [Concomitant]
     Indication: HYPOTHYROIDISM
     Dosage: 75 UG, DAILY

REACTIONS (2)
  - Drug effect incomplete [Unknown]
  - Tremor [Recovered/Resolved]
